FAERS Safety Report 15317240 (Version 3)
Quarter: 2018Q4

REPORT INFORMATION
  Report Type: Report from Study
  Country: ZA (occurrence: ZA)
  Receive Date: 20180824
  Receipt Date: 20181014
  Transmission Date: 20190204
  Serious: Yes (Death, Hospitalization, Other)
  Sender: FDA-Public Use
  Company Number: ZA-TAKEDA-2018MPI010819

PATIENT
  Age: 47 Year
  Sex: Male
  Weight: 90 kg

DRUGS (7)
  1. ASPEN PANTOPRAZOLE [Concomitant]
     Dosage: 40 MG, QD
     Dates: start: 20170227, end: 201707
  2. BETANOID                           /00008501/ [Concomitant]
     Active Substance: BETAMETHASONE
     Indication: PLASMA CELL MYELOMA
     Dosage: 20 MG, UNK
     Route: 048
     Dates: start: 20170503, end: 201706
  3. VAVIREX [Concomitant]
     Dosage: 500 MG, BID
     Route: 048
     Dates: start: 20170227, end: 201707
  4. DAPSONE. [Concomitant]
     Active Substance: DAPSONE
     Dosage: 30 MG, QD
     Route: 048
     Dates: start: 20170227, end: 201707
  5. IXAZOMIB [Suspect]
     Active Substance: IXAZOMIB
     Indication: PLASMA CELL MYELOMA
     Dosage: 4 MG, UNK
     Route: 048
     Dates: start: 20160706, end: 20160720
  6. TRAPIC [Concomitant]
     Dosage: 1 G, BID
     Route: 048
     Dates: start: 20170208, end: 201707
  7. SLOW MAG                           /01486809/ [Concomitant]
     Active Substance: MAGNESIUM
     Indication: MINERAL SUPPLEMENTATION
     Dosage: 535 MG, QD
     Route: 048
     Dates: start: 20170227, end: 201707

REACTIONS (1)
  - Plasma cell myeloma [Fatal]

NARRATIVE: CASE EVENT DATE: 20170612
